FAERS Safety Report 6857095-5 (Version None)
Quarter: 2010Q3

REPORT INFORMATION
  Report Type: 
  Country: None (occurrence: None)
  Receive Date: 20100719
  Receipt Date: 20100712
  Transmission Date: 20110219
  Serious: Yes (Hospitalization)
  Sender: FDA-Public Use
  Company Number: B0577264B

PATIENT
  Sex: Female
  Weight: 73 kg

DRUGS (2)
  1. LAPATINIB [Suspect]
     Indication: BREAST CANCER
     Dosage: 1500MG PER DAY
     Route: 048
     Dates: start: 20090430
  2. PACLITAXEL [Suspect]
     Indication: BREAST CANCER
     Dosage: 80MGM2 WEEKLY
     Route: 042
     Dates: start: 20090430

REACTIONS (5)
  - COUGH [None]
  - DIARRHOEA [None]
  - FEBRILE NEUTROPENIA [None]
  - MALAISE [None]
  - SPUTUM DISCOLOURED [None]
